FAERS Safety Report 8778736 (Version 2)
Quarter: 2012Q4

REPORT INFORMATION
  Report Type: 
  Country: US (occurrence: US)
  Receive Date: 20120912
  Receipt Date: 20121029
  Transmission Date: 20130627
  Serious: Yes (Other)
  Sender: FDA-Public Use
  Company Number: PHEH2012US017660

PATIENT
  Sex: Male

DRUGS (1)
  1. RECLAST [Suspect]
     Dosage: UNK UKN, UNK
     Route: 042
     Dates: start: 20110830

REACTIONS (1)
  - Dementia Alzheimer^s type [Unknown]
